FAERS Safety Report 4502056-4 (Version None)
Quarter: 2004Q4

REPORT INFORMATION
  Report Type: 
  Country: None (occurrence: None)
  Receive Date: 20041116
  Receipt Date: 20041014
  Transmission Date: 20050328
  Serious: Yes (Death)
  Sender: FDA-Public Use
  Company Number: FR-JNJFOC-20041004304

PATIENT
  Sex: Female
  Weight: 40 kg

DRUGS (3)
  1. DURAGESIC [Suspect]
     Indication: CANCER PAIN
     Route: 062
     Dates: start: 20041007, end: 20041009
  2. SPIRONOLACTONE [Concomitant]
     Indication: PORTAL HYPERTENSION
  3. FUROSEMIDE [Concomitant]
     Indication: PORTAL HYPERTENSION

REACTIONS (6)
  - AGITATION [None]
  - CONFUSIONAL STATE [None]
  - DEPRESSED LEVEL OF CONSCIOUSNESS [None]
  - DRUG INEFFECTIVE [None]
  - RESPIRATORY DEPRESSION [None]
  - SOMNOLENCE [None]
